FAERS Safety Report 6279486-6 (Version None)
Quarter: 2009Q3

REPORT INFORMATION
  Report Type: 
  Country: None (occurrence: None)
  Receive Date: 20090723
  Receipt Date: 20090713
  Transmission Date: 20100115
  Serious: Yes (Hospitalization)
  Sender: FDA-Public Use
  Company Number: IT-PFIZER INC-2009239317

PATIENT
  Age: 41 Year

DRUGS (10)
  1. SUNITINIB MALATE [Suspect]
     Indication: BREAST CANCER
     Dosage: 25 MG, 1X/DAY
     Route: 048
     Dates: start: 20090227, end: 20090712
  2. PACLITAXEL [Suspect]
     Indication: BREAST CANCER
     Dosage: 160 MG, WEEKLY 3 OF 4 WEEKS
     Route: 042
     Dates: start: 20090227, end: 20090707
  3. OXYCONTIN [Concomitant]
     Indication: MYALGIA
     Dosage: UNK
     Dates: start: 20090417
  4. EUTIROX [Concomitant]
     Indication: HYPOTHYROIDISM
     Dosage: UNK
     Dates: start: 20090706
  5. SOLDESAM [Concomitant]
     Indication: SUPPORTIVE CARE
     Dosage: UNK
     Dates: start: 20090707, end: 20090708
  6. ZANTAC [Concomitant]
     Indication: SUPPORTIVE CARE
     Dosage: UNK
     Dates: start: 20090707, end: 20090707
  7. ZOFRAN [Concomitant]
     Indication: SUPPORTIVE CARE
     Dosage: UNK
     Dates: start: 20090707, end: 20090708
  8. TRIMETON [Concomitant]
     Indication: SUPPORTIVE CARE
     Dosage: UNK
     Dates: start: 20090707, end: 20090707
  9. FILGRASTIM [Concomitant]
     Indication: NEUTROPENIA
     Dosage: UNK
     Dates: start: 20090702, end: 20090703
  10. ENAPREN [Concomitant]
     Indication: HYPERTENSION
     Dosage: UNK
     Dates: start: 20090313

REACTIONS (1)
  - PNEUMONITIS [None]
